FAERS Safety Report 19894108 (Version 1)
Quarter: 2021Q3

REPORT INFORMATION
  Report Type: Report from Study
  Country: AT (occurrence: AT)
  Receive Date: 20210928
  Receipt Date: 20210928
  Transmission Date: 20211014
  Serious: Yes (Hospitalization)
  Sender: FDA-Public Use
  Company Number: AT-MYLANLABS-2021M1065984

PATIENT
  Age: 47 Year
  Sex: Female
  Weight: 58 kg

DRUGS (27)
  1. TRASTUZUMAB. [Suspect]
     Active Substance: TRASTUZUMAB
     Indication: BREAST CANCER
     Dosage: 6 MILLIGRAM/KILOGRAM, Q3W
     Route: 042
     Dates: start: 20190724, end: 20190912
  2. TRASTUZUMAB EMTANSINE [Suspect]
     Active Substance: ADO-TRASTUZUMAB EMTANSINE
     Indication: BREAST CANCER
     Dosage: 3.6 MILLIGRAM/KILOGRAM, Q3W (MOST RECENT DOSE PRIOR TO THE EVENT: 03/JUL/2020)
     Route: 042
     Dates: start: 20191014, end: 20200518
  3. CAPECITABINE. [Suspect]
     Active Substance: CAPECITABINE
     Indication: BREAST CANCER
     Dosage: 500 MILLIGRAM (FREQUENCY: OTHER MOST RECENT DOSE PRIOR TO THE EVENT: 09/JAN/2021)
     Route: 048
     Dates: start: 20200923, end: 20201220
  4. FORTECORTIN                        /00016001/ [Concomitant]
     Active Substance: DEXAMETHASONE
     Indication: COVID-19
     Dosage: UNK (ONGOING = CHECKED)
     Dates: start: 20190704
  5. LOVENOX [Concomitant]
     Active Substance: ENOXAPARIN SODIUM
     Indication: COVID-19
     Dosage: UNK (ONGOING = NOT CHECKED)
     Dates: start: 20210302, end: 20210305
  6. CEOLAT [Concomitant]
     Dosage: UNK (ONGOING = CHECKED)
     Dates: start: 20190815
  7. LAPATINIB [Suspect]
     Active Substance: LAPATINIB
     Indication: BREAST CANCER
     Dosage: 250 MILLIGRAM (FREQUENCY: OTHER MOST RECENT DOSE PRIOR TO THE EVENT: 09/JAN/2021)
     Route: 048
     Dates: start: 20200923, end: 20201228
  8. EUTHYROX [Concomitant]
     Active Substance: LEVOTHYROXINE SODIUM
     Dosage: UNK (ONGOING = CHECKED)
     Dates: start: 20190703
  9. FORLAX [Concomitant]
     Active Substance: POLYETHYLENE GLYCOL 4000
     Dosage: UNK (ONGOING = CHECKED)
     Dates: start: 20190705
  10. FORTECORTIN                        /00016001/ [Concomitant]
     Active Substance: DEXAMETHASONE
     Dosage: UNK (ONGOING = NOT CHECKED)
     Dates: start: 20210302, end: 20210304
  11. ZOFRAN [Concomitant]
     Active Substance: ONDANSETRON HYDROCHLORIDE
     Dosage: UNK (ONGOING = CHECKED)
     Dates: start: 20190704
  12. PANTOLOC                           /01263201/ [Concomitant]
     Active Substance: PANTOPRAZOLE SODIUM
     Indication: COVID-19
     Dosage: UNK (ONGOING = NOT CHECKED)
     Dates: start: 20210302, end: 20210303
  13. CITALOPRAM [Concomitant]
     Active Substance: CITALOPRAM HYDROBROMIDE
     Dosage: UNK (ONGOING = CHECKED)
     Dates: start: 20190715
  14. MEXALEN [Concomitant]
     Active Substance: ACETAMINOPHEN
     Dosage: UNK (ONGOING = CHECKED)
     Dates: start: 20190701
  15. ZOFRAN [Concomitant]
     Active Substance: ONDANSETRON HYDROCHLORIDE
     Dosage: UNK (ONGOING = NOT CHECKED)
     Dates: start: 20210302, end: 20210302
  16. HYDAL [Concomitant]
     Active Substance: HYDROMORPHONE HYDROCHLORIDE
     Dosage: UNK (ONGOING = CHECKED)
     Dates: start: 20190716
  17. SUCRALAN [Concomitant]
     Dosage: UNK (ONGOING = CHECKED)
     Dates: start: 20190701
  18. PARACETAMOL [Concomitant]
     Active Substance: ACETAMINOPHEN
     Indication: COVID-19
     Dosage: UNK (ONGOING = NOT CHECKED)
     Dates: start: 20210302, end: 20210303
  19. DRONABINOL. [Concomitant]
     Active Substance: DRONABINOL
     Dosage: UNK (ONGOING = CHECKED)
     Dates: start: 20190716
  20. PACLITAXEL. [Suspect]
     Active Substance: PACLITAXEL
     Indication: BREAST CANCER
     Dosage: 260 MILLIGRAM/SQ. METER, Q3W
     Route: 042
     Dates: start: 20190724, end: 20190912
  21. PERTUZUMAB. [Suspect]
     Active Substance: PERTUZUMAB
     Indication: BREAST CANCER
     Dosage: 420 MILLIGRAM, Q3W
     Route: 042
     Dates: start: 20190724, end: 20190912
  22. ZOFRAN [Concomitant]
     Active Substance: ONDANSETRON HYDROCHLORIDE
     Indication: COVID-19
     Dosage: UNK (ONGOING = CHECKED)
     Dates: start: 20190701
  23. HYDAL [Concomitant]
     Active Substance: HYDROMORPHONE HYDROCHLORIDE
     Dosage: UNK (ONGOING = CHECKED )
     Dates: start: 20190716
  24. OLANZAPIN [Concomitant]
     Active Substance: OLANZAPINE
     Dosage: UNK (ONGOING = CHECKED)
     Dates: start: 20190904
  25. ALPRAZOLAM. [Concomitant]
     Active Substance: ALPRAZOLAM
     Dosage: UNK (ONGOING = CHECKED)
     Dates: start: 20190715
  26. TRITTICO [Concomitant]
     Active Substance: TRAZODONE HYDROCHLORIDE
     Dosage: UNK (ONGOING = CHECKED)
     Dates: start: 20190716
  27. ASCORBIC ACID. [Concomitant]
     Active Substance: ASCORBIC ACID
     Dosage: UNK (ONGOING = CHECKED)
     Dates: start: 20190717

REACTIONS (1)
  - COVID-19 [Recovered/Resolved]

NARRATIVE: CASE EVENT DATE: 20210302
